FAERS Safety Report 6976389-6 (Version None)
Quarter: 2010Q3

REPORT INFORMATION
  Report Type: 
  Country: None (occurrence: None)
  Receive Date: 20100910
  Receipt Date: 20100826
  Transmission Date: 20110219
  Serious: Yes (Other)
  Sender: FDA-Public Use
  Company Number: US-SANOFI-AVENTIS-2010SA051486

PATIENT
  Age: 4 Month
  Sex: Male
  Weight: 6 kg

DRUGS (3)
  1. PLAVIX [Suspect]
     Route: 048
     Dates: start: 20100825, end: 20100825
  2. PLAVIX [Suspect]
     Route: 048
     Dates: start: 20100826, end: 20100826
  3. ANTITHROMBOTIC AGENTS [Concomitant]

REACTIONS (3)
  - ACCIDENTAL OVERDOSE [None]
  - MEDICATION ERROR [None]
  - OFF LABEL USE [None]
